FAERS Safety Report 24119387 (Version 1)
Quarter: 2024Q3

REPORT INFORMATION
  Report Type: Spontaneous
  Country: US (occurrence: US)
  Receive Date: 20240722
  Receipt Date: 20240722
  Transmission Date: 20241016
  Serious: No
  Sender: DR REDDYS
  Company Number: None

PATIENT
  Age: 86 Year
  Sex: Male

DRUGS (15)
  1. GEMCITABINE [Suspect]
     Active Substance: GEMCITABINE
     Indication: Metastases to kidney
     Dates: start: 2011
  2. GEMCITABINE [Suspect]
     Active Substance: GEMCITABINE
     Indication: Metastases to lymph nodes
  3. GEMCITABINE [Suspect]
     Active Substance: GEMCITABINE
     Indication: Metastases to the mediastinum
  4. GEMCITABINE [Suspect]
     Active Substance: GEMCITABINE
     Indication: Testicular cancer metastatic
  5. GEMCITABINE [Suspect]
     Active Substance: GEMCITABINE
     Indication: Testis cancer
  6. DOXORUBICIN [Concomitant]
     Active Substance: DOXORUBICIN
     Indication: Metastases to lymph nodes
     Dates: start: 2011
  7. DOXORUBICIN [Concomitant]
     Active Substance: DOXORUBICIN
     Indication: Metastases to kidney
  8. DOXORUBICIN [Concomitant]
     Active Substance: DOXORUBICIN
     Indication: Metastases to the mediastinum
  9. DOXORUBICIN [Concomitant]
     Active Substance: DOXORUBICIN
     Indication: Testicular cancer metastatic
  10. DOXORUBICIN [Concomitant]
     Active Substance: DOXORUBICIN
     Indication: Testis cancer
  11. PACLITAXEL [Concomitant]
     Active Substance: PACLITAXEL
     Indication: Metastases to lymph nodes
     Dates: start: 2011
  12. PACLITAXEL [Concomitant]
     Active Substance: PACLITAXEL
     Indication: Testis cancer
  13. PACLITAXEL [Concomitant]
     Active Substance: PACLITAXEL
     Indication: Metastases to kidney
  14. PACLITAXEL [Concomitant]
     Active Substance: PACLITAXEL
     Indication: Testicular cancer metastatic
  15. PACLITAXEL [Concomitant]
     Active Substance: PACLITAXEL
     Indication: Metastases to the mediastinum

REACTIONS (1)
  - Full blood count decreased [Unknown]
